FAERS Safety Report 9235695 (Version 6)
Quarter: 2013Q3

REPORT INFORMATION
  Report Type: Report from Study
  Country: CA (occurrence: CA)
  Receive Date: 20130417
  Receipt Date: 20130916
  Transmission Date: 20140515
  Serious: Yes (Death, Hospitalization, Other)
  Sender: FDA-Public Use
  Company Number: CA-JNJFOC-20130404901

PATIENT
  Sex: Male
  Weight: 104.33 kg

DRUGS (25)
  1. NOVOLIN NPH [Concomitant]
     Route: 065
  2. AMITRIPTYLINE [Concomitant]
     Route: 065
  3. AMOXICILLIN [Concomitant]
     Route: 065
  4. CLINDAMYCIN [Concomitant]
     Route: 065
  5. CODEINE [Concomitant]
     Route: 065
  6. PHAZYME [Concomitant]
     Route: 065
  7. OMEPRAZOLE [Concomitant]
     Route: 065
  8. CIPRO [Concomitant]
     Route: 065
  9. METHOTREXATE [Concomitant]
     Route: 065
     Dates: start: 2005
  10. REMICADE [Suspect]
     Indication: POUCHITIS
     Route: 042
     Dates: start: 20130402, end: 2013
  11. REMICADE [Suspect]
     Indication: POUCHITIS
     Route: 042
     Dates: start: 20090429
  12. REMICADE [Suspect]
     Indication: COLITIS ULCERATIVE
     Route: 042
     Dates: start: 20130402, end: 2013
  13. REMICADE [Suspect]
     Indication: COLITIS ULCERATIVE
     Route: 042
     Dates: start: 20090429
  14. ACLASTA [Concomitant]
     Indication: OSTEOPOROSIS
     Route: 065
  15. PREDNISONE [Concomitant]
     Indication: GASTROINTESTINAL DISORDER
     Route: 048
  16. PREDNISONE [Concomitant]
     Indication: GASTROINTESTINAL DISORDER
     Route: 048
     Dates: start: 2005
  17. NPH INSULIN [Concomitant]
     Indication: DIABETES MELLITUS
     Route: 065
  18. ONDANSETRON [Concomitant]
     Indication: NAUSEA
     Route: 065
  19. VITAMIN B [Concomitant]
     Route: 065
  20. VITAMIN B12 [Concomitant]
     Route: 065
  21. VITAMIN C [Concomitant]
     Route: 065
  22. VITAMIN D3 [Concomitant]
     Route: 065
  23. CORTIFOAM [Concomitant]
     Route: 065
  24. SALOFALK [Concomitant]
     Route: 065
  25. NOVOLIN TORONTO [Concomitant]
     Route: 065

REACTIONS (4)
  - Hepatocellular carcinoma [Fatal]
  - Weight decreased [Unknown]
  - Influenza like illness [Unknown]
  - Off label use [Unknown]
